FAERS Safety Report 9448779 (Version 1)
Quarter: 2013Q3

REPORT INFORMATION
  Report Type: Report from Study
  Country: FR (occurrence: FR)
  Receive Date: 20130808
  Receipt Date: 20130808
  Transmission Date: 20140515
  Serious: Yes (Other)
  Sender: FDA-Public Use
  Company Number: FR-GENZYME-CAMP-1003059

PATIENT
  Age: 62 Year
  Sex: Male

DRUGS (6)
  1. CAMPATH [Suspect]
     Indication: CHRONIC LYMPHOCYTIC LEUKAEMIA
     Dosage: 3 MG, QD
     Route: 058
     Dates: start: 20130708, end: 20130708
  2. CAMPATH [Suspect]
     Dosage: 10 MG, QD
     Route: 058
     Dates: start: 20130709, end: 20130709
  3. CAMPATH [Suspect]
     Dosage: 10 MG, QD
     Route: 042
     Dates: start: 20130711, end: 20130712
  4. BACTRIM [Concomitant]
     Indication: PRODUCT USED FOR UNKNOWN INDICATION
     Dosage: UNK
     Route: 065
  5. ORALDENE [Concomitant]
     Indication: PRODUCT USED FOR UNKNOWN INDICATION
     Dosage: 1 MIU, BID
     Route: 065
  6. ERITREX [Concomitant]
     Indication: PRODUCT USED FOR UNKNOWN INDICATION
     Dosage: 500 UNK, BID
     Route: 065

REACTIONS (3)
  - Toxic skin eruption [Unknown]
  - Pyrexia [Unknown]
  - Chills [Unknown]
